FAERS Safety Report 6901884-5 (Version None)
Quarter: 2010Q3

REPORT INFORMATION
  Report Type: 
  Country: None (occurrence: None)
  Receive Date: 20100803
  Receipt Date: 20080324
  Transmission Date: 20110219
  Serious: Yes (Other)
  Sender: FDA-Public Use
  Company Number: US-PFIZER INC-2008026821

PATIENT
  Sex: Female
  Weight: 111.36 kg

DRUGS (18)
  1. LYRICA [Suspect]
     Indication: NEUROPATHY PERIPHERAL
     Dates: start: 20080201
  2. LYRICA [Suspect]
     Indication: FIBROMYALGIA
  3. AVAPRO [Concomitant]
  4. SPIRONOLACTONE [Concomitant]
  5. ACETYLSALICYLIC ACID SRT [Concomitant]
  6. NEXIUM [Concomitant]
  7. GLUCOVANCE [Concomitant]
  8. ALLOPURINOL [Concomitant]
  9. SYNTHROID [Concomitant]
  10. ZYRTEC [Concomitant]
  11. COLACE [Concomitant]
  12. ZOCOR [Concomitant]
  13. BACLOFEN [Concomitant]
  14. MONTELUKAST SODIUM [Concomitant]
  15. TIOTROPIUM BROMIDE [Concomitant]
  16. ADVAIR DISKUS 100/50 [Concomitant]
  17. ALBUTEROL [Concomitant]
     Route: 055
  18. QUININE SULFATE [Concomitant]

REACTIONS (7)
  - BALANCE DISORDER [None]
  - FALL [None]
  - OEDEMA PERIPHERAL [None]
  - PAIN [None]
  - PARAESTHESIA [None]
  - TONGUE OEDEMA [None]
  - TREMOR [None]
